FAERS Safety Report 8795804 (Version 1)
Quarter: 2012Q4

REPORT INFORMATION
  Report Type: 
  Country: DE (occurrence: DE)
  Receive Date: 20120920
  Receipt Date: 20120920
  Transmission Date: 20130627
  Serious: Yes (Hospitalization, Disabling)
  Sender: FDA-Public Use
  Company Number: DE-PFIZER INC-2012104424

PATIENT
  Age: 39 Year
  Sex: Female
  Weight: 87 kg

DRUGS (1)
  1. DEPO-CLINOVIR [Suspect]
     Indication: CONTRACEPTION
     Dosage: 150 mg, UNK
     Route: 030

REACTIONS (2)
  - Embolism [Not Recovered/Not Resolved]
  - Foot amputation [Not Recovered/Not Resolved]
